FAERS Safety Report 8078652-7 (Version None)
Quarter: 2012Q1

REPORT INFORMATION
  Report Type: 
  Country: None (occurrence: None)
  Receive Date: 20120124
  Receipt Date: 20120117
  Transmission Date: 20120608
  Serious: Yes (Life-Threatening, Hospitalization)
  Sender: FDA-Public Use
  Company Number: AUR-APL-2012-00254

PATIENT
  Age: 59 Year
  Sex: Female
  Weight: 104.7 kg

DRUGS (21)
  1. ACETAMINOPHEN W/ CODEINE [Concomitant]
  2. OMEPRAZOLE [Concomitant]
  3. CLIMAVAL (ESTRADIOL VALERATE) [Concomitant]
  4. FUROSEMIDE [Concomitant]
  5. UNIPHYL [Concomitant]
  6. ESTRADIOL VALERATE [Concomitant]
  7. FUSIDIC ACID [Concomitant]
  8. VENTOLIN [Concomitant]
  9. LISINOPRIL [Suspect]
     Indication: PRODUCT USED FOR UNKNOWN INDICATION
     Dates: start: 20101101
  10. BENDROFLUMETHAZIDE [Concomitant]
  11. FLUCONAZOLE [Concomitant]
  12. NICOTINE [Concomitant]
  13. FLUOXETINE [Concomitant]
  14. TIOPRONIN [Concomitant]
  15. EPIPEN [Concomitant]
  16. AMOXICILLIN [Suspect]
     Indication: PRODUCT USED FOR UNKNOWN INDICATION
     Dates: start: 20110816, end: 20110821
  17. AMLODIPINE [Concomitant]
  18. CETIRIZINE [Concomitant]
  19. PREDNISOLONE [Suspect]
     Indication: PRODUCT USED FOR UNKNOWN INDICATION
     Dosage: (30 MG)
     Dates: start: 20110816, end: 20110826
  20. ERYTHROMYCIN [Concomitant]
  21. FLUTICASONE PROPIONATE [Concomitant]

REACTIONS (3)
  - BRONCHOSPASM [None]
  - ANAPHYLACTIC REACTION [None]
  - NASAL DRYNESS [None]
